FAERS Safety Report 15034044 (Version 1)
Quarter: 2018Q2

REPORT INFORMATION
  Report Type: Spontaneous
  Country: US (occurrence: US)
  Receive Date: 20180620
  Receipt Date: 20180620
  Transmission Date: 20180711
  Serious: No
  Sender: FDA-Public Use
  Company Number: US-TEVA-805619ACC

PATIENT
  Sex: Female

DRUGS (5)
  1. REMICADE [Concomitant]
     Active Substance: INFLIXIMAB
  2. LIALDA [Concomitant]
     Active Substance: MESALAMINE
  3. ANASTROZOLE. [Suspect]
     Active Substance: ANASTROZOLE
     Indication: BREAST CANCER
     Dates: start: 20130415
  4. REMICADE [Concomitant]
     Active Substance: INFLIXIMAB
  5. ANASTROZOLE. [Suspect]
     Active Substance: ANASTROZOLE
     Indication: ALOPECIA

REACTIONS (2)
  - Contusion [Unknown]
  - Alopecia [Unknown]
